FAERS Safety Report 24765944 (Version 3)
Quarter: 2025Q2

REPORT INFORMATION
  Report Type: Spontaneous
  Country: US (occurrence: US)
  Receive Date: 20241223
  Receipt Date: 20250608
  Transmission Date: 20250717
  Serious: Yes (Death)
  Sender: COHERUS
  Company Number: US-COHERUS BIOSCIENCES, INC-2024-COH-US001277

PATIENT

DRUGS (1)
  1. UDENYCA [Suspect]
     Active Substance: PEGFILGRASTIM-CBQV
     Indication: Prophylaxis
     Dosage: 6 MG, Q3WEEKS
     Route: 058
     Dates: start: 20240517, end: 20240703

REACTIONS (1)
  - Rhabdomyosarcoma [Fatal]

NARRATIVE: CASE EVENT DATE: 20240915
